FAERS Safety Report 7809354 (Version 8)
Quarter: 2012Q4

REPORT INFORMATION
  Report Type: Report from Study
  Country: SE (occurrence: SE)
  Receive Date: 20110211
  Receipt Date: 20120919
  Transmission Date: 20130627
  Serious: Yes (Hospitalization, Other)
  Sender: FDA-Public Use
  Company Number: SE-BRISTOL-MYERS SQUIBB COMPANY-15532799

PATIENT
  Age: 67 Year
  Sex: Male

DRUGS (8)
  1. BLINDED: SAXAGLIPTIN [Suspect]
     Indication: TYPE 2 DIABETES MELLITUS
     Dates: start: 20101009
  2. METFORMIN HCL [Suspect]
     Indication: TYPE 2 DIABETES MELLITUS
     Dosage: 1500mg: 02Mar2012
1000mg: 22Mar2012
     Dates: start: 20110422, end: 20120228
  3. BLINDED: PLACEBO [Suspect]
     Indication: TYPE 2 DIABETES MELLITUS
     Dates: start: 20101009
  4. CRESTOR [Suspect]
  5. ANGIOTENSIN [Concomitant]
     Dosage: Angiotensin receptor blocker Again Therapy started on 20Jan11
     Dates: start: 20101008
  6. EZETIMIBE [Concomitant]
     Dosage: Again Therapy started on 20Jan11
     Dates: start: 20101008
  7. CALCIUM ANTAGONIST [Concomitant]
     Dosage: Again Therapy started on 20Jan11
     Dates: start: 20101008
  8. ASPIRIN [Concomitant]
     Dosage: Again Therapy started on 20Jan11
     Dates: start: 20101008

REACTIONS (4)
  - Pancreatitis [Recovered/Resolved]
  - Biliary polyp [Unknown]
  - Abdominal pain [Recovered/Resolved]
  - Influenza [Recovered/Resolved]
